FAERS Safety Report 17428922 (Version 1)
Quarter: 2020Q1

REPORT INFORMATION
  Report Type: Spontaneous
  Country: US (occurrence: US)
  Receive Date: 20200217
  Receipt Date: 20200217
  Transmission Date: 20200409
  Serious: No
  Sender: FDA-Public Use
  Company Number: NVSC2020US042072

PATIENT

DRUGS (2)
  1. CYCLOSPORINE. [Suspect]
     Active Substance: CYCLOSPORINE
     Indication: VOGT-KOYANAGI-HARADA DISEASE
     Dosage: UNK 100-200 MG
     Route: 048
  2. AZATHIOPRINE. [Suspect]
     Active Substance: AZATHIOPRINE
     Indication: VOGT-KOYANAGI-HARADA DISEASE
     Dosage: UNK 100-150 MG
     Route: 048

REACTIONS (2)
  - Herpes zoster [Unknown]
  - Drug ineffective for unapproved indication [Unknown]
